FAERS Safety Report 7172072-5 (Version None)
Quarter: 2010Q4

REPORT INFORMATION
  Report Type: 
  Country: None (occurrence: None)
  Receive Date: 20101217
  Receipt Date: 20100201
  Transmission Date: 20110411
  Serious: No
  Sender: FDA-Public Use
  Company Number: US-AMGEN-KDL389959

PATIENT

DRUGS (6)
  1. ENBREL [Suspect]
     Indication: RHEUMATOID ARTHRITIS
     Dosage: 50 MG, QWK
     Route: 058
     Dates: start: 20091105, end: 20100204
  2. WARFARIN SODIUM [Concomitant]
  3. ESOMEPRAZOLE MAGNESIUM [Concomitant]
  4. ALPRAZOLAM [Concomitant]
  5. TRIAZOLAM [Concomitant]
  6. ZOLEDRONIC ACID [Concomitant]
     Dosage: UNK UNK, UNK
     Route: 042
     Dates: start: 20091203

REACTIONS (4)
  - DRUG INEFFECTIVE [None]
  - INJECTION SITE PAIN [None]
  - INJECTION SITE URTICARIA [None]
  - NIGHT SWEATS [None]
